FAERS Safety Report 6100507-5 (Version None)
Quarter: 2009Q1

REPORT INFORMATION
  Report Type: 
  Country: None (occurrence: None)
  Receive Date: 20090227
  Receipt Date: 20090227
  Transmission Date: 20090719
  Serious: Yes (Hospitalization)
  Sender: FDA-Public Use
  Company Number: None

PATIENT
  Age: 74 Year
  Sex: Male
  Weight: 88.8 kg

DRUGS (16)
  1. ABILIFY [Suspect]
     Indication: AFFECTIVE DISORDER
     Dosage: 20MG PO DAILY
     Route: 048
     Dates: start: 20070901
  2. ABILIFY [Suspect]
     Indication: DEMENTIA
     Dosage: 20MG PO DAILY
     Route: 048
     Dates: start: 20070901
  3. ALBUTEROL/IPRATROP BR [Concomitant]
  4. ASPIRIN [Concomitant]
  5. CLOPIDROGEL [Concomitant]
  6. FUROSEMIDE [Concomitant]
  7. GABAPENTIN [Concomitant]
  8. INSULIN (REG AND GLARGINE) [Concomitant]
  9. ISOSORBIDE DINITRATE [Concomitant]
  10. METOPROLOL [Concomitant]
  11. NIACIN [Concomitant]
  12. SL NTG [Concomitant]
  13. OMEPRAZOLE [Concomitant]
  14. KCI [Concomitant]
  15. SIMVASTATIN [Concomitant]
  16. FOLIC ACID [Concomitant]

REACTIONS (4)
  - ACUTE MYOCARDIAL INFARCTION [None]
  - HYPOTENSION [None]
  - LETHARGY [None]
  - RENAL FAILURE ACUTE [None]
